FAERS Safety Report 13791256 (Version 4)
Quarter: 2017Q3

REPORT INFORMATION
  Report Type: Spontaneous
  Country: US (occurrence: US)
  Receive Date: 20170725
  Receipt Date: 20170913
  Transmission Date: 20171127
  Serious: No
  Sender: FDA-Public Use
  Company Number: US-ASTRAZENECA-2017SE73824

PATIENT
  Age: 79 Year
  Sex: Female

DRUGS (10)
  1. DALIRESP [Suspect]
     Active Substance: ROFLUMILAST
     Indication: RESPIRATION ABNORMAL
     Route: 048
     Dates: start: 2016
  2. TUDORZA PRESSAIR [Suspect]
     Active Substance: ACLIDINIUM BROMIDE
     Indication: CHRONIC OBSTRUCTIVE PULMONARY DISEASE
     Dosage: 1 PUFF TWICE DAILY
     Route: 055
     Dates: start: 201607
  3. LORAZEPAM. [Concomitant]
     Active Substance: LORAZEPAM
     Indication: ANXIETY
     Route: 048
     Dates: start: 2013
  4. FUROSEMIDE. [Concomitant]
     Active Substance: FUROSEMIDE
     Indication: DIURETIC THERAPY
     Route: 048
     Dates: start: 2013
  5. BIOTIN [Concomitant]
     Active Substance: BIOTIN
     Indication: ALOPECIA
     Route: 048
     Dates: start: 2017
  6. TUDORZA PRESSAIR [Suspect]
     Active Substance: ACLIDINIUM BROMIDE
     Indication: ASTHMA
     Dosage: 1 PUFF TWICE DAILY
     Route: 055
     Dates: start: 201607
  7. POTASSIUM [Concomitant]
     Active Substance: POTASSIUM
     Dosage: DAILY
     Route: 048
     Dates: start: 2013
  8. CLARITIN [Concomitant]
     Active Substance: LORATADINE
     Indication: DYSPNOEA
     Route: 048
     Dates: start: 2013
  9. VITAMIN D [Concomitant]
     Active Substance: CHOLECALCIFEROL
     Route: 048
     Dates: start: 2013
  10. VITAMIN C [Concomitant]
     Active Substance: ASCORBIC ACID
     Route: 048
     Dates: start: 2013

REACTIONS (8)
  - Product use in unapproved indication [Unknown]
  - Alopecia [Unknown]
  - Device issue [Unknown]
  - Device malfunction [Unknown]
  - Off label use [Unknown]
  - Dyspnoea [Unknown]
  - Drug dose omission [Unknown]
  - Intentional product misuse [Unknown]

NARRATIVE: CASE EVENT DATE: 2017
